FAERS Safety Report 4992596-6 (Version None)
Quarter: 2006Q1

REPORT INFORMATION
  Report Type: 
  Country: None (occurrence: None)
  Receive Date: 20060314
  Receipt Date: 20051213
  Transmission Date: 20060701
  Serious: No
  Sender: FDA-Public Use
  Company Number: 2005-02459

PATIENT
  Age: 52 Year
  Sex: Female

DRUGS (7)
  1. VELCADE (BORTEZPMIB) INJECTION [Suspect]
     Indication: MULTIPLE MYELOMA
     Dosage: 2.60 MG, IV BOLUS
     Route: 040
     Dates: start: 20051101
  2. ZOMETA [Concomitant]
  3. SUDAFED 12 HOUR [Concomitant]
  4. LEVOXYL [Concomitant]
  5. ACETAMINOPHEN [Concomitant]
  6. ZANTAC [Concomitant]
  7. ZOFRAN [Concomitant]

REACTIONS (7)
  - ARTHRALGIA [None]
  - DIARRHOEA [None]
  - DIZZINESS [None]
  - DYSGEUSIA [None]
  - FEELING HOT [None]
  - PAIN [None]
  - VISUAL DISTURBANCE [None]
